FAERS Safety Report 8240060-3 (Version None)
Quarter: 2012Q1

REPORT INFORMATION
  Report Type: 
  Country: None (occurrence: None)
  Receive Date: 20120328
  Receipt Date: 20120320
  Transmission Date: 20120608
  Serious: Yes (Other)
  Sender: FDA-Public Use
  Company Number: BR-BAYER-2012-027891

PATIENT
  Age: 29 Year
  Sex: Female
  Weight: 60 kg

DRUGS (2)
  1. ESTRADIOL VALERATE/DIENOGEST [Suspect]
     Indication: CONTRACEPTION
     Dosage: 1 DF, QD
     Route: 048
     Dates: start: 20120220
  2. ALBUTEROL [Concomitant]
     Indication: ASTHMA
     Dosage: 2 DF, TID
     Route: 049
     Dates: start: 20100101

REACTIONS (1)
  - ASTHMATIC CRISIS [None]
